FAERS Safety Report 15599129 (Version 2)
Quarter: 2025Q2

REPORT INFORMATION
  Report Type: Spontaneous
  Country: JP (occurrence: JP)
  Receive Date: 20181108
  Receipt Date: 20250408
  Transmission Date: 20250716
  Serious: Yes (Hospitalization, Other)
  Sender: BAYER
  Company Number: JP-BAYER-2018-204029

PATIENT
  Age: 7 Decade

DRUGS (1)
  1. NEXAVAR [Suspect]
     Active Substance: SORAFENIB
     Indication: Hepatocellular carcinoma
     Dosage: 200 MG, BID
     Route: 048
     Dates: start: 20180830

REACTIONS (2)
  - Hepatocellular carcinoma [None]
  - Hepatic function abnormal [Recovering/Resolving]
